FAERS Safety Report 5983936-X (Version None)
Quarter: 2008Q4

REPORT INFORMATION
  Report Type: 
  Country: None (occurrence: None)
  Receive Date: 20081208
  Receipt Date: 20081125
  Transmission Date: 20090506
  Serious: Yes (Death, Hospitalization)
  Sender: FDA-Public Use
  Company Number: EC-ROCHE-599560

PATIENT
  Age: 40 Year
  Sex: Female
  Weight: 83 kg

DRUGS (3)
  1. XELODA [Suspect]
     Indication: GASTRIC CANCER
     Dosage: DAILY FOR 14 DAYS. RECEIVED THREE CYCLES
     Route: 048
     Dates: start: 20080717, end: 20081016
  2. DOCETAXEL [Concomitant]
     Indication: GASTRIC CANCER
     Dosage: EVERY FOUR WEEKS
     Route: 042
     Dates: start: 20080717, end: 20081016
  3. CISPLATIN [Concomitant]
     Indication: GASTRIC CANCER
     Dosage: EVERY FOUR WEEKS
     Route: 042
     Dates: start: 20080717, end: 20081016

REACTIONS (2)
  - DISEASE PROGRESSION [None]
  - VOMITING [None]
